FAERS Safety Report 7203360-1 (Version None)
Quarter: 2010Q4

REPORT INFORMATION
  Report Type: 
  Country: None (occurrence: None)
  Receive Date: 20101216
  Receipt Date: 20101206
  Transmission Date: 20110411
  Serious: Yes (Hospitalization)
  Sender: FDA-Public Use
  Company Number: CTI_01276_2010

PATIENT
  Sex: Male

DRUGS (1)
  1. SPECTRACEF (GIASON - CEFDITOREN) 200 MG (NOT SPECIFIED) [Suspect]
     Indication: BACTERIAL INFECTION
     Dosage: (400 MG ORAL)
     Route: 048
     Dates: start: 20100916, end: 20100916

REACTIONS (3)
  - EPIGLOTTIC OEDEMA [None]
  - OEDEMA MOUTH [None]
  - TONGUE OEDEMA [None]
